FAERS Safety Report 24386330 (Version 1)
Quarter: 2024Q4

REPORT INFORMATION
  Report Type: Spontaneous
  Country: US (occurrence: US)
  Receive Date: 20241001
  Receipt Date: 20241001
  Transmission Date: 20250114
  Serious: No
  Sender: BIOGEN
  Company Number: US-BIOGEN-2023BI01189073

PATIENT
  Age: 74 Year
  Sex: Male

DRUGS (2)
  1. TOFERSEN [Suspect]
     Active Substance: TOFERSEN
     Indication: Familial amyotrophic lateral sclerosis
     Route: 050
     Dates: start: 20220517, end: 20220517
  2. TOFERSEN [Suspect]
     Active Substance: TOFERSEN
     Route: 050

REACTIONS (3)
  - Post lumbar puncture syndrome [Recovered/Resolved]
  - Back pain [Recovered/Resolved]
  - Dyspnoea [Unknown]

NARRATIVE: CASE EVENT DATE: 20220517
